FAERS Safety Report 14940704 (Version 1)
Quarter: 2018Q2

REPORT INFORMATION
  Report Type: Spontaneous
  Country: US (occurrence: US)
  Receive Date: 20180525
  Receipt Date: 20180525
  Transmission Date: 20180711
  Serious: No
  Sender: FDA-Public Use
  Company Number: US-ACTELION-A-NJ2018-171793

PATIENT
  Age: 58 Year
  Sex: Female

DRUGS (1)
  1. OPSUMIT [Suspect]
     Active Substance: MACITENTAN
     Indication: PULMONARY ARTERIAL HYPERTENSION
     Dosage: 10 MG, QD
     Route: 048
     Dates: start: 20150113

REACTIONS (4)
  - Respiratory tract congestion [Unknown]
  - Rhinorrhoea [Unknown]
  - Sinus headache [Unknown]
  - Headache [Unknown]

NARRATIVE: CASE EVENT DATE: 20180424
